FAERS Safety Report 13651773 (Version 3)
Quarter: 2017Q3

REPORT INFORMATION
  Report Type: Spontaneous
  Country: KR (occurrence: KR)
  Receive Date: 20170614
  Receipt Date: 20170714
  Transmission Date: 20171127
  Serious: Yes (Death, Other)
  Sender: FDA-Public Use
  Company Number: KR-AMGEN-KORSP2017088218

PATIENT
  Age: 10 Year

DRUGS (1)
  1. BLINCYTO [Suspect]
     Active Substance: BLINATUMOMAB
     Indication: PRODUCT USED FOR UNKNOWN INDICATION
     Dosage: UNK
     Route: 065

REACTIONS (5)
  - Pneumonia [Fatal]
  - Seizure [Unknown]
  - Somnolence [Unknown]
  - Arrhythmia [Unknown]
  - Bladder dysfunction [Unknown]
